FAERS Safety Report 13897071 (Version 2)
Quarter: 2017Q3

REPORT INFORMATION
  Report Type: Spontaneous
  Country: US (occurrence: US)
  Receive Date: 20170823
  Receipt Date: 20170908
  Transmission Date: 20171127
  Serious: Yes (Other)
  Sender: FDA-Public Use
  Company Number: US-SAOL THERAPEUTICS-2017SAO01338

PATIENT
  Age: 46 Year
  Sex: Female
  Weight: 124.72 kg

DRUGS (23)
  1. AMPYRA [Concomitant]
     Active Substance: DALFAMPRIDINE
  2. LEVOTHYROXINE. [Concomitant]
     Active Substance: LEVOTHYROXINE
  3. MELATONIN [Concomitant]
     Active Substance: MELATONIN
  4. NUVIGIL [Concomitant]
     Active Substance: ARMODAFINIL
  5. LYRICA [Concomitant]
     Active Substance: PREGABALIN
  6. SIMVASTATIN. [Concomitant]
     Active Substance: SIMVASTATIN
  7. WARFARIN [Concomitant]
     Active Substance: WARFARIN
  8. CARBAMAZEPINE. [Concomitant]
     Active Substance: CARBAMAZEPINE
  9. CLONIDINE. [Concomitant]
     Active Substance: CLONIDINE
  10. PRISTIQ EXTENDED-RELEASE [Concomitant]
     Active Substance: DESVENLAFAXINE SUCCINATE
  11. ADDERALL [Concomitant]
     Active Substance: AMPHETAMINE ASPARTATE\AMPHETAMINE SULFATE\DEXTROAMPHETAMINE SACCHARATE\DEXTROAMPHETAMINE SULFATE
  12. GABLOFEN [Suspect]
     Active Substance: BACLOFEN
     Dosage: UNK
     Route: 037
  13. BYSTOLIC [Concomitant]
     Active Substance: NEBIVOLOL HYDROCHLORIDE
  14. LURASIDONE [Concomitant]
     Active Substance: LURASIDONE
  15. SINGULAIR [Concomitant]
     Active Substance: MONTELUKAST SODIUM
  16. LORAZEPAM. [Concomitant]
     Active Substance: LORAZEPAM
  17. FIORICET [Concomitant]
     Active Substance: ACETAMINOPHEN\BUTALBITAL\CAFFEINE
  18. GABLOFEN [Suspect]
     Active Substance: BACLOFEN
     Dosage: 96 ?G, \DAY
     Route: 037
  19. CELLCEPT [Concomitant]
     Active Substance: MYCOPHENOLATE MOFETIL\MYCOPHENOLATE MOFETIL HYDROCHLORIDE
  20. LISINOPRIL. [Concomitant]
     Active Substance: LISINOPRIL
  21. CELEBREX [Concomitant]
     Active Substance: CELECOXIB
  22. ^TYTERODENE^ [Concomitant]
  23. CEPHALEXIN. [Concomitant]
     Active Substance: CEPHALEXIN

REACTIONS (3)
  - Implant site infection [Unknown]
  - Muscular weakness [Unknown]
  - Device dislocation [Not Recovered/Not Resolved]

NARRATIVE: CASE EVENT DATE: 201707
